FAERS Safety Report 6746443-2 (Version None)
Quarter: 2010Q2

REPORT INFORMATION
  Report Type: 
  Country: None (occurrence: None)
  Receive Date: 20100528
  Receipt Date: 20100524
  Transmission Date: 20101027
  Serious: Yes (Hospitalization)
  Sender: FDA-Public Use
  Company Number: US-ROCHE-704209

PATIENT
  Sex: Female
  Weight: 84.4 kg

DRUGS (12)
  1. BLINDED BEVACIZUMAB [Suspect]
     Indication: GLIOBLASTOMA
     Dosage: TEMPORARILY INTERRUPTED
     Route: 042
     Dates: start: 20100406
  2. TEMOZOLOMIDE [Suspect]
     Indication: GLIOBLASTOMA
     Dosage: FREQUENCY: QD
     Route: 048
     Dates: start: 20100406
  3. GLYBURIDE [Concomitant]
     Dates: start: 20040101
  4. METFORMIN HYDROCHLORIDE [Concomitant]
     Dates: start: 20060101
  5. VERAPAMIL [Concomitant]
     Dates: start: 20050101
  6. IMIPRAMINE [Concomitant]
     Dates: start: 20030101
  7. ZOLOFT [Concomitant]
     Dates: start: 20030101
  8. PEPCID [Concomitant]
     Dates: start: 20100201
  9. DEXAMETHASONE [Concomitant]
     Dates: start: 20100322
  10. KEPPRA [Concomitant]
     Dates: start: 20100201
  11. AMBIEN [Concomitant]
     Dates: start: 20100201
  12. ATIVAN [Concomitant]

REACTIONS (3)
  - DEHYDRATION [None]
  - HYPERGLYCAEMIA [None]
  - PNEUMONIA [None]
